FAERS Safety Report 10419347 (Version 1)
Quarter: 2014Q2

REPORT INFORMATION
  Report Type: Spontaneous
  Country: US (occurrence: None)
  Receive Date: 20140627
  Receipt Date: 20140627
  Transmission Date: 20141212
  Serious: Yes (Other)
  Sender: FDA-Public Use
  Company Number: PHEH2013US017055

PATIENT
  Age: 57 Year
  Sex: Female

DRUGS (4)
  1. DIOVAN HCT (VALSARTAN, HYDROCHLOROTHIAZIDE) UNKNOWN [Suspect]
     Dosage: 1 DDF 25 VALS
     Route: 048
     Dates: start: 201306
  2. ASPIRIN (ACETYLSALICYLIC ACID) [Concomitant]
  3. MULTI-VIT (VITAMIN NOS) [Concomitant]
  4. CLONIDINE [Concomitant]

REACTIONS (2)
  - Blood pressure increased [None]
  - Drug ineffective [None]
